FAERS Safety Report 20239659 (Version 2)
Quarter: 2022Q1

REPORT INFORMATION
  Report Type: Other
  Country: US (occurrence: US)
  Receive Date: 20211228
  Receipt Date: 20220111
  Transmission Date: 20220423
  Serious: No
  Sender: FDA-Public Use
  Company Number: US-Covis Pharma GmbH-2021COV23800

PATIENT
  Age: 27 Year
  Sex: Female
  Weight: 78.996 kg

DRUGS (1)
  1. MAKENA [Suspect]
     Active Substance: HYDROXYPROGESTERONE CAPROATE
     Indication: Premature delivery
     Route: 058
     Dates: start: 20210730, end: 2021

REACTIONS (5)
  - Lip swelling [Recovered/Resolved]
  - Injection site swelling [Recovered/Resolved]
  - Injection site rash [Not Recovered/Not Resolved]
  - Injection site paraesthesia [Recovered/Resolved]
  - Inappropriate schedule of product administration [Unknown]

NARRATIVE: CASE EVENT DATE: 20210730
